FAERS Safety Report 16715105 (Version 3)
Quarter: 2019Q3

REPORT INFORMATION
  Report Type: Spontaneous
  Country: US (occurrence: US)
  Receive Date: 20190819
  Receipt Date: 20190924
  Transmission Date: 20191005
  Serious: No
  Sender: FDA-Public Use
  Company Number: US-PFIZER INC-2019350402

PATIENT
  Age: 46 Year
  Sex: Male
  Weight: 79 kg

DRUGS (1)
  1. FLECTOR [Suspect]
     Active Substance: DICLOFENAC EPOLAMINE
     Indication: PAIN
     Dosage: UNK UNK, 1X/DAY (2 PATCHES X DAY)

REACTIONS (1)
  - Drug ineffective [Unknown]
